FAERS Safety Report 9494810 (Version 1)
Quarter: 2013Q3

REPORT INFORMATION
  Report Type: Spontaneous
  Country: US (occurrence: None)
  Receive Date: 20130830
  Receipt Date: 20130830
  Transmission Date: 20140515
  Serious: Yes (Other)
  Sender: FDA-Public Use
  Company Number: None

PATIENT
  Age: 56 Year
  Sex: Female
  Weight: 752.7 kg

DRUGS (1)
  1. QSYMIA [Suspect]
     Indication: OBESITY
     Dosage: 2 PILLS ONE EACH DAY
     Dates: start: 20130811, end: 20130812

REACTIONS (3)
  - Angle closure glaucoma [None]
  - Impaired work ability [None]
  - Unevaluable event [None]
